FAERS Safety Report 15854822 (Version 2)
Quarter: 2019Q1

REPORT INFORMATION
  Report Type: Report from Study
  Country: FR (occurrence: FR)
  Receive Date: 20190122
  Receipt Date: 20190124
  Transmission Date: 20190417
  Serious: Yes (Death, Other)
  Sender: FDA-Public Use
  Company Number: FR-JAZZ-2019-FR-000645

PATIENT

DRUGS (1)
  1. DEFITELIO [Suspect]
     Active Substance: DEFIBROTIDE SODIUM
     Indication: PROPHYLAXIS
     Dosage: 24.4 MG/KG, QD
     Dates: start: 20170414, end: 20170501

REACTIONS (3)
  - Septic shock [Fatal]
  - Meningitis [Unknown]
  - Paraplegia [Unknown]

NARRATIVE: CASE EVENT DATE: 20170504
